FAERS Safety Report 5900838-5 (Version None)
Quarter: 2008Q3

REPORT INFORMATION
  Report Type: 
  Country: None (occurrence: None)
  Receive Date: 20080925
  Receipt Date: 20080909
  Transmission Date: 20090109
  Serious: Yes (Other)
  Sender: FDA-Public Use
  Company Number: 2008EU001885

PATIENT
  Sex: Male

DRUGS (2)
  1. PROTOPIC [Suspect]
     Indication: RASH PAPULAR
     Dosage: TOPICAL
     Route: 061
  2. CYCLOSPORINE [Concomitant]

REACTIONS (1)
  - SQUAMOUS CELL CARCINOMA [None]
